FAERS Safety Report 20596478 (Version 3)
Quarter: 2022Q2

REPORT INFORMATION
  Report Type: Spontaneous
  Country: US (occurrence: US)
  Receive Date: 20220315
  Receipt Date: 20220523
  Transmission Date: 20220720
  Serious: Yes (Other)
  Sender: FDA-Public Use
  Company Number: US-PFIZER INC-202200037054

PATIENT
  Age: 50 Year
  Sex: Female

DRUGS (2)
  1. IBRANCE [Suspect]
     Active Substance: PALBOCICLIB
     Indication: Breast cancer female
     Dosage: 125 MG
     Dates: start: 20211228
  2. IBRANCE [Suspect]
     Active Substance: PALBOCICLIB
     Dosage: 100 MG
     Dates: start: 20220402

REACTIONS (8)
  - Neutropenia [Unknown]
  - Fatigue [Unknown]
  - White blood cell count decreased [Unknown]
  - Skin burning sensation [Unknown]
  - Paraesthesia [Unknown]
  - Infection [Unknown]
  - Stomatitis [Unknown]
  - Influenza [Unknown]
